FAERS Safety Report 9407901 (Version 2)
Quarter: 2013Q3

REPORT INFORMATION
  Report Type: Spontaneous
  Country: US (occurrence: US)
  Receive Date: 20130718
  Receipt Date: 20130806
  Transmission Date: 20140515
  Serious: No
  Sender: FDA-Public Use
  Company Number: US-009507513-1307USA008444

PATIENT
  Age: 78 Year
  Sex: Female
  Weight: 96.6 kg

DRUGS (6)
  1. CLARITIN REDITABS [Suspect]
     Indication: RASH
     Dosage: UNK, UNKNOWN
     Route: 048
     Dates: start: 20130705, end: 20130705
  2. CLARITIN REDITABS [Suspect]
     Indication: MEDICAL OBSERVATION
  3. JANUVIA [Concomitant]
     Indication: DIABETES MELLITUS
     Dosage: UNK, UNKNOWN
  4. LISINOPRIL [Concomitant]
     Indication: HYPERTENSION
     Dosage: UNK, UNKNOWN
  5. HYDROCHLOROTHIAZIDE [Concomitant]
     Indication: HYPERTENSION
     Dosage: UNK, UNKNOWN
  6. TYLENOL ARTHRITIS PAIN [Concomitant]
     Indication: ARTHRITIS
     Dosage: UNK, UNKNOWN

REACTIONS (3)
  - Drug ineffective [Unknown]
  - Drug ineffective for unapproved indication [Unknown]
  - Off label use [Unknown]
